FAERS Safety Report 9784939 (Version 1)
Quarter: 2013Q4

REPORT INFORMATION
  Report Type: Spontaneous
  Country: RU (occurrence: RU)
  Receive Date: 20131227
  Receipt Date: 20131227
  Transmission Date: 20140711
  Serious: Yes (Hospitalization)
  Sender: FDA-Public Use
  Company Number: RU-ROCHE-1326528

PATIENT
  Age: 62 Year
  Sex: Female

DRUGS (6)
  1. LUCENTIS [Suspect]
     Indication: PRODUCT USED FOR UNKNOWN INDICATION
     Route: 050
  2. ACETYLSALICYLIC ACID [Concomitant]
  3. MAGNESIUM HYDROXIDE [Concomitant]
  4. ENALAPRIL [Concomitant]
  5. SPIRONOLACTONE [Concomitant]
  6. METFORMIN HYDROCHLORIDE [Concomitant]
     Route: 065

REACTIONS (1)
  - Myocardial infarction [Recovered/Resolved]
